FAERS Safety Report 16551671 (Version 2)
Quarter: 2019Q3

REPORT INFORMATION
  Report Type: Spontaneous
  Country: JP (occurrence: JP)
  Receive Date: 20190710
  Receipt Date: 20190905
  Transmission Date: 20191004
  Serious: Yes (Other)
  Sender: FDA-Public Use
  Company Number: JP-PFIZER INC-2019280955

PATIENT
  Age: 69 Year
  Sex: Male

DRUGS (1)
  1. SUTENT [Suspect]
     Active Substance: SUNITINIB MALATE
     Dosage: 50 MG, CYCLIC (5 DAYS ON AND TWO DAYS OFF)
     Route: 048

REACTIONS (4)
  - Paralysis [Recovering/Resolving]
  - Product use issue [Unknown]
  - Off label use [Unknown]
  - Neoplasm progression [Unknown]
